FAERS Safety Report 21855775 (Version 2)
Quarter: 2023Q1

REPORT INFORMATION
  Report Type: Spontaneous
  Country: US (occurrence: US)
  Receive Date: 20230112
  Receipt Date: 20230209
  Transmission Date: 20230418
  Serious: Yes (Hospitalization)
  Sender: FDA-Public Use
  Company Number: US-TEVA-2023-US-2843049

PATIENT
  Sex: Male

DRUGS (23)
  1. AMIKACIN [Suspect]
     Active Substance: AMIKACIN
     Indication: Disseminated Bacillus Calmette-Guerin infection
     Route: 042
  2. AMIKACIN [Suspect]
     Active Substance: AMIKACIN
     Indication: Mycobacterial infection
  3. BUSULFAN [Suspect]
     Active Substance: BUSULFAN
     Indication: Prophylaxis against graft versus host disease
     Route: 065
  4. BUSULFAN [Suspect]
     Active Substance: BUSULFAN
     Indication: Bone marrow conditioning regimen
  5. ISONIAZID [Suspect]
     Active Substance: ISONIAZID
     Indication: Disseminated Bacillus Calmette-Guerin infection
     Route: 065
  6. ISONIAZID [Suspect]
     Active Substance: ISONIAZID
     Indication: Mycobacterial infection
  7. ETHAMBUTOL [Suspect]
     Active Substance: ETHAMBUTOL HYDROCHLORIDE
     Indication: Disseminated Bacillus Calmette-Guerin infection
     Route: 065
  8. ETHAMBUTOL [Suspect]
     Active Substance: ETHAMBUTOL HYDROCHLORIDE
     Indication: Mycobacterial infection
  9. FLUDARABINE [Suspect]
     Active Substance: FLUDARABINE PHOSPHATE
     Indication: Prophylaxis against graft versus host disease
     Route: 065
  10. FLUDARABINE [Suspect]
     Active Substance: FLUDARABINE PHOSPHATE
     Indication: Bone marrow conditioning regimen
  11. BCG VACCINE [Suspect]
     Active Substance: BCG VACCINE
     Indication: Tuberculosis immunisation
     Route: 065
  12. RIFAMPIN [Suspect]
     Active Substance: RIFAMPIN
     Indication: Disseminated Bacillus Calmette-Guerin infection
     Route: 065
  13. RIFAMPIN [Suspect]
     Active Substance: RIFAMPIN
     Indication: Mycobacterial infection
  14. ETHIONAMIDE [Suspect]
     Active Substance: ETHIONAMIDE
     Indication: Disseminated Bacillus Calmette-Guerin infection
     Route: 065
  15. ETHIONAMIDE [Suspect]
     Active Substance: ETHIONAMIDE
     Indication: Mycobacterial infection
  16. CYCLOPHOSPHAMIDE [Suspect]
     Active Substance: CYCLOPHOSPHAMIDE
     Indication: Prophylaxis against graft versus host disease
     Route: 065
  17. CYCLOPHOSPHAMIDE [Suspect]
     Active Substance: CYCLOPHOSPHAMIDE
     Indication: Bone marrow conditioning regimen
  18. LEVOFLOXACIN [Concomitant]
     Active Substance: LEVOFLOXACIN
     Indication: Disseminated Bacillus Calmette-Guerin infection
     Route: 065
  19. LEVOFLOXACIN [Concomitant]
     Active Substance: LEVOFLOXACIN
     Indication: Mycobacterial infection
  20. LINEZOLID [Concomitant]
     Active Substance: LINEZOLID
     Indication: Disseminated Bacillus Calmette-Guerin infection
     Route: 065
  21. LINEZOLID [Concomitant]
     Active Substance: LINEZOLID
     Indication: Mycobacterial infection
  22. SULFAMETHOXAZOLE\TRIMETHOPRIM [Concomitant]
     Active Substance: SULFAMETHOXAZOLE\TRIMETHOPRIM
     Indication: Prophylaxis
     Route: 065
  23. FLUCONAZOLE [Concomitant]
     Active Substance: FLUCONAZOLE
     Indication: Prophylaxis
     Route: 065

REACTIONS (12)
  - Disseminated Bacillus Calmette-Guerin infection [Recovered/Resolved]
  - Mycobacterial infection [Recovered/Resolved]
  - Transaminases increased [Unknown]
  - Deafness [Unknown]
  - Immune reconstitution inflammatory syndrome [Recovering/Resolving]
  - Granuloma [Recovered/Resolved]
  - Pneumonia [Unknown]
  - Pneumonia pneumococcal [Unknown]
  - Klebsiella infection [Unknown]
  - Stenotrophomonas infection [Unknown]
  - Burkholderia cepacia complex infection [Unknown]
  - Drug ineffective [Unknown]
